FAERS Safety Report 6095645-X (Version None)
Quarter: 2009Q1

REPORT INFORMATION
  Report Type: 
  Country: None (occurrence: None)
  Receive Date: 20090227
  Receipt Date: 20080513
  Transmission Date: 20090719
  Serious: No
  Sender: FDA-Public Use
  Company Number: A0727716A

PATIENT
  Age: 27 Year
  Sex: Female

DRUGS (5)
  1. LAMICTAL [Suspect]
     Indication: BIPOLAR DISORDER
     Dosage: 150MG PER DAY
     Route: 048
     Dates: start: 20040201, end: 20080510
  2. NAPROSYN [Suspect]
     Dosage: 500MG SINGLE DOSE
     Route: 065
     Dates: start: 20080509, end: 20080509
  3. ABILIFY [Concomitant]
  4. ZYPREXA [Concomitant]
  5. ZOLOFT [Concomitant]

REACTIONS (2)
  - PRURITUS [None]
  - RASH [None]
